FAERS Safety Report 8285872-5 (Version None)
Quarter: 2012Q2

REPORT INFORMATION
  Report Type: 
  Country: None (occurrence: None)
  Receive Date: 20120413
  Receipt Date: 20120405
  Transmission Date: 20120825
  Serious: Yes (Hospitalization)
  Sender: FDA-Public Use
  Company Number: US-ELI_LILLY_AND_COMPANY-US201204002392

PATIENT
  Sex: Female

DRUGS (7)
  1. CYMBALTA [Suspect]
     Indication: BACK PAIN
     Dosage: 60 MG, QD
     Dates: start: 20110101
  2. SYNTHROID [Concomitant]
  3. ANESTHETICS [Concomitant]
  4. FORTEO [Suspect]
     Indication: OSTEOPOROSIS
     Dosage: 20 UG, QD
     Dates: start: 20120101, end: 20120328
  5. MULTI-VITAMIN [Concomitant]
  6. PRILOSEC [Concomitant]
  7. CALCIUM CARBONATE [Concomitant]

REACTIONS (6)
  - POSTURE ABNORMAL [None]
  - SURGERY [None]
  - PAIN [None]
  - FALL [None]
  - BOWEL MOVEMENT IRREGULARITY [None]
  - FRACTURE [None]
